FAERS Safety Report 5675764-X (Version None)
Quarter: 2008Q1

REPORT INFORMATION
  Report Type: 
  Country: None (occurrence: None)
  Receive Date: 20080318
  Receipt Date: 20080310
  Transmission Date: 20080703
  Serious: Yes (Other)
  Sender: FDA-Public Use
  Company Number: 2008005947

PATIENT
  Age: 84 Year
  Sex: Female
  Weight: 74.8435 kg

DRUGS (2)
  1. BENGAY ULTRA STRENGTH PATCH (MENTHOL) [Suspect]
     Indication: PAIN
     Dosage: 1 PATCH 1 TIME, TRANSDERMAL
     Route: 062
     Dates: start: 20070805, end: 20070805
  2. COUMDAIN (WARFARIN SODIUM) [Concomitant]

REACTIONS (1)
  - APPLICATION SITE BURN [None]
